FAERS Safety Report 18888507 (Version 1)
Quarter: 2021Q1

REPORT INFORMATION
  Report Type: Spontaneous
  Country: US (occurrence: US)
  Receive Date: 20210213
  Receipt Date: 20210213
  Transmission Date: 20210420
  Serious: No
  Sender: FDA-Public Use
  Company Number: US-SA-2021SA042059

PATIENT
  Sex: Male

DRUGS (3)
  1. DUPIXENT [Suspect]
     Active Substance: DUPILUMAB
     Indication: ECZEMA
     Dosage: 600 MG, 1X
     Dates: start: 2019, end: 2019
  2. DUPIXENT [Suspect]
     Active Substance: DUPILUMAB
     Dosage: 300 MG, QOW
  3. DESCOVY [Suspect]
     Active Substance: EMTRICITABINE\TENOFOVIR ALAFENAMIDE FUMARATE
     Dosage: 1 DF, QD
     Dates: start: 202010, end: 202012

REACTIONS (6)
  - Drug ineffective [Unknown]
  - Skin exfoliation [Unknown]
  - Contusion [Unknown]
  - Pruritus [Unknown]
  - Rash macular [Unknown]
  - Eczema [Unknown]

NARRATIVE: CASE EVENT DATE: 202011
